FAERS Safety Report 9214615 (Version 2)
Quarter: 2013Q2

REPORT INFORMATION
  Report Type: Spontaneous
  Country: GB (occurrence: GB)
  Receive Date: 20130405
  Receipt Date: 20130528
  Transmission Date: 20140414
  Serious: Yes (Other)
  Sender: FDA-Public Use
  Company Number: GB-MERCK-1304USA000125

PATIENT
  Age: 68 Year
  Sex: Male

DRUGS (3)
  1. MK-5592 [Suspect]
     Indication: ZYGOMYCOSIS
     Dosage: UNK
     Route: 042
  2. AMPHOTERICIN B [Concomitant]
  3. ANTIMICROBIAL (UNSPECIFIED) [Concomitant]

REACTIONS (8)
  - Blindness [Unknown]
  - Orbitotomy [Unknown]
  - Sinus operation [Unknown]
  - Plastic surgery to the face [Unknown]
  - Skin necrosis [Unknown]
  - Trigeminal neuralgia [Unknown]
  - Facial neuralgia [Unknown]
  - Drug ineffective [Unknown]
